FAERS Safety Report 14829437 (Version 1)
Quarter: 2018Q2

REPORT INFORMATION
  Report Type: Spontaneous
  Country: US (occurrence: US)
  Receive Date: 20180406
  Receipt Date: 20180406
  Transmission Date: 20180711
  Serious: No
  Sender: FDA-Public Use
  Company Number: None

PATIENT
  Age: 67 Year
  Sex: Female
  Weight: 71.1 kg

DRUGS (11)
  1. CONTRAVE [Suspect]
     Active Substance: BUPROPION HYDROCHLORIDE\NALTREXONE HYDROCHLORIDE
     Indication: WEIGHT DECREASED
     Dosage: ?          QUANTITY:1 TABLET(S);?
     Route: 048
     Dates: start: 20180306, end: 20180323
  2. PRAVASTATIN. [Concomitant]
     Active Substance: PRAVASTATIN
  3. METOPROLOL. [Concomitant]
     Active Substance: METOPROLOL
  4. CALCIUM +D [Concomitant]
     Active Substance: CALCIUM\VITAMIN D
  5. IBUPROFEN. [Concomitant]
     Active Substance: IBUPROFEN
  6. NAPROXEN SODIUM. [Concomitant]
     Active Substance: NAPROXEN SODIUM
  7. FLONASE [Concomitant]
     Active Substance: FLUTICASONE PROPIONATE
  8. ESTRADIOL. [Concomitant]
     Active Substance: ESTRADIOL
  9. FISH OIL [Concomitant]
     Active Substance: FISH OIL
  10. LEVOTHYROXINE. [Concomitant]
     Active Substance: LEVOTHYROXINE
  11. ASPIRIN. [Concomitant]
     Active Substance: ASPIRIN

REACTIONS (4)
  - Headache [None]
  - Restlessness [None]
  - Insomnia [None]
  - Ear discomfort [None]

NARRATIVE: CASE EVENT DATE: 20180306
